FAERS Safety Report 11855292 (Version 1)
Quarter: 2015Q4

REPORT INFORMATION
  Report Type: Spontaneous
  Country: BR (occurrence: BR)
  Receive Date: 20151221
  Receipt Date: 20151221
  Transmission Date: 20160305
  Serious: Yes (Other)
  Sender: FDA-Public Use
  Company Number: PHHY2015BR165637

PATIENT
  Sex: Female
  Weight: 56 kg

DRUGS (4)
  1. RITALIN [Suspect]
     Active Substance: METHYLPHENIDATE HYDROCHLORIDE
     Indication: ATTENTION DEFICIT/HYPERACTIVITY DISORDER
     Dosage: 2 DF (TWO TABLETS), QD
     Route: 065
  2. RITALIN LA [Suspect]
     Active Substance: METHYLPHENIDATE HYDROCHLORIDE
     Indication: ATTENTION DEFICIT/HYPERACTIVITY DISORDER
     Dosage: UNK
     Route: 065
  3. RITALIN LA [Suspect]
     Active Substance: METHYLPHENIDATE HYDROCHLORIDE
     Dosage: 1 DF (ONE CAPSULE), QD (IN THE MORNING)
     Route: 065
  4. RITALIN [Suspect]
     Active Substance: METHYLPHENIDATE HYDROCHLORIDE
     Dosage: 0.5 DF (HALF TABLET), BID (IN THE MORNING AND AFTER LUNCH)
     Route: 065

REACTIONS (10)
  - Pain [Unknown]
  - Pyrexia [Unknown]
  - Hypoaesthesia [Unknown]
  - Rash erythematous [Recovering/Resolving]
  - Expired product administered [Unknown]
  - Lymphadenopathy [Unknown]
  - Drug ineffective [Unknown]
  - Flavivirus infection [Unknown]
  - Nausea [Unknown]
  - Pruritus [Unknown]
